FAERS Safety Report 11654982 (Version 6)
Quarter: 2016Q4

REPORT INFORMATION
  Report Type: Spontaneous
  Country: US (occurrence: US)
  Receive Date: 20151023
  Receipt Date: 20161024
  Transmission Date: 20170206
  Serious: Yes (Hospitalization, Other)
  Sender: FDA-Public Use
  Company Number: US-PFIZER INC-2015346082

PATIENT
  Age: 79 Year
  Sex: Male
  Weight: 83 kg

DRUGS (27)
  1. PROSCAR [Concomitant]
     Active Substance: FINASTERIDE
     Dosage: 5 MG, DAILY
     Route: 048
  2. XANAX [Concomitant]
     Active Substance: ALPRAZOLAM
     Dosage: 0.25 MG, AS NEEDED (AT BEDTIME)
     Route: 048
  3. WARFARIN [Concomitant]
     Active Substance: WARFARIN
     Dosage: 3 MG, DAILY (AT BEDTIME)
     Route: 048
  4. CORDARONE [Concomitant]
     Active Substance: AMIODARONE HYDROCHLORIDE
     Dosage: 200 MG, 2X/DAY (PATIENT TAKES AT 1 A.M.)
     Route: 048
  5. ALIGN [Concomitant]
     Active Substance: BIFIDOBACTERIUM LONGUM SUBSP. INFANTIS
     Dosage: 1 DF, DAILY (IN THE MORNING)
  6. GENTAMICIN SULFATE. [Concomitant]
     Active Substance: GENTAMICIN SULFATE
     Dosage: UNK UNK, DAILY
  7. INLYTA [Suspect]
     Active Substance: AXITINIB
     Dosage: 10 MG, 2X/DAY
  8. FISH OIL [Concomitant]
     Active Substance: FISH OIL
     Dosage: 1200 MG, 2X/DAY
     Route: 048
  9. PANTOPRAZOLE [Concomitant]
     Active Substance: PANTOPRAZOLE SODIUM
     Dosage: 40 MG, DAILY
     Route: 048
  10. INLYTA [Suspect]
     Active Substance: AXITINIB
     Indication: RENAL CANCER
     Dosage: 1 MG, 2X/DAY
     Route: 048
     Dates: start: 20131129
  11. INLYTA [Suspect]
     Active Substance: AXITINIB
     Dosage: 2 DF, DAILY
     Dates: start: 20140919
  12. POTASSIUM CHLORIDE. [Concomitant]
     Active Substance: POTASSIUM CHLORIDE
     Dosage: 20 MEQ, DAILY (TAKE IN THE MORNING)
     Route: 048
     Dates: start: 20130614
  13. INLYTA [Suspect]
     Active Substance: AXITINIB
     Dosage: 1 MG, DAILY
     Dates: start: 20140613
  14. BUMEX [Concomitant]
     Active Substance: BUMETANIDE
     Dosage: 1 MG, AS NEEDED (AS NEEDED)
  15. XANAX [Concomitant]
     Active Substance: ALPRAZOLAM
     Dosage: 0.25 MG, 1X/DAY (ONE AT BEDTIME)
     Route: 048
  16. VITAMIN D2 [Concomitant]
     Active Substance: ERGOCALCIFEROL
     Dosage: 1.25 MG, WEEKLY, [ONCE A WEEK]
     Route: 048
  17. RENO [Concomitant]
     Dosage: 1 DF, DAILY
     Route: 048
     Dates: start: 20130217
  18. TRAZODONE [Concomitant]
     Active Substance: TRAZODONE HYDROCHLORIDE
     Indication: SLEEP DISORDER
     Dosage: 50 MG, AS NEEDED (EVERY DAY BEFORE SLEEP )
     Route: 048
  19. ALLOPURINOL. [Concomitant]
     Active Substance: ALLOPURINOL
     Dosage: 100 MG, DAILY
     Route: 048
  20. VITAMIN B12 [Concomitant]
     Active Substance: CYANOCOBALAMIN
     Dosage: 500 UG, DAILY
     Route: 048
  21. VITAMIN D3 [Concomitant]
     Active Substance: CHOLECALCIFEROL
     Dosage: 1000 IU, DAILY, [ONCE A DAY]
     Route: 048
  22. LOMOTIL [Concomitant]
     Active Substance: ATROPINE SULFATE\DIPHENOXYLATE HYDROCHLORIDE
     Dosage: UNK, AS NEEDED
     Route: 048
  23. DIGOXIN. [Concomitant]
     Active Substance: DIGOXIN
     Dosage: 0.125 MG, ALTERNATE DAY, [ONCE EVERY OTHER DAY]
     Route: 048
  24. FLOMAX [Concomitant]
     Active Substance: TAMSULOSIN HYDROCHLORIDE
     Dosage: 0.4 MG, DAILY, [ONCE A DAY]
     Route: 048
  25. COREG [Concomitant]
     Active Substance: CARVEDILOL
     Dosage: 12.5 MG, 2X/DAY
     Route: 048
  26. SYNTHROID [Concomitant]
     Active Substance: LEVOTHYROXINE SODIUM
     Dosage: 200 ?G, DAILY (TAKE IN THE MORNING ON AN EMPTY STOMACH)
     Route: 048
  27. RENAL [Concomitant]
     Dosage: UNK

REACTIONS (10)
  - Cardiac disorder [Unknown]
  - Cardiac valve disease [Unknown]
  - Pleural effusion [Unknown]
  - Atrial fibrillation [Recovered/Resolved]
  - Cardiac failure congestive [Recovered/Resolved]
  - Dyspnoea [Unknown]
  - Cataract [Unknown]
  - International normalised ratio fluctuation [Unknown]
  - Hernia [Recovered/Resolved]
  - Infection [Recovered/Resolved]

NARRATIVE: CASE EVENT DATE: 2016
